FAERS Safety Report 25648946 (Version 1)
Quarter: 2025Q3

REPORT INFORMATION
  Report Type: Spontaneous
  Country: BR (occurrence: BR)
  Receive Date: 20250806
  Receipt Date: 20250806
  Transmission Date: 20251020
  Serious: Yes (Other)
  Sender: EMD SERONO INC
  Company Number: BR-Merck Healthcare KGaA-2025039069

PATIENT
  Sex: Female

DRUGS (1)
  1. LEVOTHYROXINE SODIUM [Suspect]
     Active Substance: LEVOTHYROXINE SODIUM
     Indication: Hypothyroidism
     Dosage: LOT EXPIRATION DATE: SEP-2026. MANUFACTURE DATE: OCT-2024

REACTIONS (2)
  - Cataract [Recovering/Resolving]
  - Product dose omission in error [Unknown]
